FAERS Safety Report 8507174-1 (Version None)
Quarter: 2012Q3

REPORT INFORMATION
  Report Type: 
  Country: None (occurrence: None)
  Receive Date: 20120712
  Receipt Date: 20120706
  Transmission Date: 20120928
  Serious: Yes (Other)
  Sender: FDA-Public Use
  Company Number: PHHY2010JP09512

PATIENT
  Age: 10 Year
  Sex: Male

DRUGS (6)
  1. MYCOPHENOLATE MOFETIL [Suspect]
     Indication: BONE MARROW TRANSPLANT
  2. TACROLIMUS [Suspect]
     Indication: BONE MARROW TRANSPLANT
  3. CYCLOSPORINE [Suspect]
     Indication: BONE MARROW TRANSPLANT
  4. METHOTREXATE [Suspect]
     Indication: BONE MARROW TRANSPLANT
  5. METHYLPREDNISOLONE [Suspect]
     Indication: BONE MARROW TRANSPLANT
  6. PREDNISOLONE [Suspect]
     Indication: BONE MARROW TRANSPLANT
     Dosage: 3 MG, UNK

REACTIONS (9)
  - TOXICITY TO VARIOUS AGENTS [None]
  - TOXIC ENCEPHALOPATHY [None]
  - CATARACT [None]
  - DRUG INEFFECTIVE [None]
  - HYPOGAMMAGLOBULINAEMIA [None]
  - THROMBOCYTOPENIA [None]
  - PANCREATITIS [None]
  - GRAFT VERSUS HOST DISEASE IN SKIN [None]
  - HYPERTENSION [None]
